FAERS Safety Report 8989525 (Version 1)
Quarter: 2012Q4

REPORT INFORMATION
  Report Type: 
  Country: FR (occurrence: FR)
  Receive Date: 20121227
  Receipt Date: 20121227
  Transmission Date: 20130627
  Serious: Yes (Other)
  Sender: FDA-Public Use
  Company Number: FR-JNJFOC-20121212876

PATIENT
  Age: 75 Year
  Sex: Female

DRUGS (8)
  1. XARELTO [Suspect]
     Indication: CEREBROVASCULAR ACCIDENT PROPHYLAXIS
     Route: 048
  2. XARELTO [Suspect]
     Indication: ATRIAL FIBRILLATION
     Route: 048
  3. BIPRETERAX [Concomitant]
  4. EUPRESSYL [Concomitant]
  5. ZANIDIP [Concomitant]
  6. LIPANOR [Concomitant]
  7. FLECAINIDE [Concomitant]
  8. DIFFU K [Concomitant]

REACTIONS (1)
  - Renal impairment [Unknown]
